FAERS Safety Report 7092055-3 (Version None)
Quarter: 2010Q4

REPORT INFORMATION
  Report Type: 
  Country: None (occurrence: None)
  Receive Date: 20101109
  Receipt Date: 20080818
  Transmission Date: 20110411
  Serious: No
  Sender: FDA-Public Use
  Company Number: US-KINGPHARMUSA00001-K200800975

PATIENT
  Sex: Female

DRUGS (1)
  1. SKELAXIN [Suspect]
     Dosage: 800 MG, SINGLE
     Route: 048
     Dates: start: 20080801, end: 20080801

REACTIONS (3)
  - HYPERHIDROSIS [None]
  - LETHARGY [None]
  - NAUSEA [None]
